FAERS Safety Report 17184241 (Version 1)
Quarter: 2019Q4

REPORT INFORMATION
  Report Type: Spontaneous
  Country: US (occurrence: US)
  Receive Date: 20191220
  Receipt Date: 20191220
  Transmission Date: 20200122
  Serious: No
  Sender: FDA-Public Use
  Company Number: US-RECKITT BENCKISER HEALTHCARE INT LIMITED-RB-89126-2019

PATIENT
  Age: 13 Year
  Sex: Male
  Weight: 49.43 kg

DRUGS (1)
  1. DELSYM [Suspect]
     Active Substance: DEXTROMETHORPHAN
     Indication: PRODUCT USED FOR UNKNOWN INDICATION
     Dosage: UNK, SINGLE, 2 TABLESPOON
     Route: 065
     Dates: start: 20190813

REACTIONS (1)
  - Wrong technique in product usage process [Unknown]
